FAERS Safety Report 6449064-4 (Version None)
Quarter: 2009Q4

REPORT INFORMATION
  Report Type: 
  Country: None (occurrence: None)
  Receive Date: 20091120
  Receipt Date: 20091116
  Transmission Date: 20100525
  Serious: Yes (Death, Hospitalization)
  Sender: FDA-Public Use
  Company Number: FR-ROCHE-669306

PATIENT
  Sex: Male

DRUGS (14)
  1. CAPECITABINE [Suspect]
     Indication: GASTRIC CANCER
     Route: 048
     Dates: start: 20080114
  2. EPIRUBICIN [Suspect]
     Indication: GASTRIC CANCER
     Dosage: DATE OF LAST DOSE PRIOR TO SAE: 14 JANUARY 2009.
     Route: 042
     Dates: start: 20080114
  3. CISPLATIN [Suspect]
     Indication: GASTRIC CANCER
     Dosage: LAST DOSE PRIOR TO SAE: 14 JANUARY 2009.
     Route: 042
     Dates: start: 20080114
  4. IRINOTECAN HCL [Suspect]
     Indication: GASTRIC CANCER
     Route: 042
     Dates: start: 20070924, end: 20071227
  5. FLUOROURACIL [Suspect]
     Indication: GASTRIC CANCER
     Route: 042
     Dates: start: 20070924, end: 20071228
  6. ELVORINE [Suspect]
     Indication: GASTRIC CANCER
     Route: 042
     Dates: start: 20070924, end: 20071227
  7. LASILIX [Concomitant]
  8. SERETIDE [Concomitant]
     Dosage: DRUG NAME: SERETIDE 500.  TDD: 2 PUFFS.
  9. ALLOPURINOL [Concomitant]
  10. ISOPTIN [Concomitant]
  11. SPIRIVA [Concomitant]
     Dosage: TDD: 1 INTAKE.
  12. INIPOMP [Concomitant]
  13. OXYCONTIN [Concomitant]
     Dosage: TDD: 2 TABLETS.
  14. PHOSPHALUGEL [Concomitant]

REACTIONS (4)
  - ABDOMINAL PAIN UPPER [None]
  - APHAGIA [None]
  - GENERAL PHYSICAL HEALTH DETERIORATION [None]
  - VOMITING [None]
